FAERS Safety Report 5758977-8 (Version None)
Quarter: 2008Q2

REPORT INFORMATION
  Report Type: 
  Country: None (occurrence: None)
  Receive Date: 20080602
  Receipt Date: 20080526
  Transmission Date: 20081010
  Serious: Yes (Life-Threatening, Hospitalization, Other)
  Sender: FDA-Public Use
  Company Number: 6042907

PATIENT
  Age: 83 Year
  Sex: Female

DRUGS (9)
  1. BISOPROLOL FUMARATE [Suspect]
     Indication: DRUG USE FOR UNKNOWN INDICATION
     Dosage: 10 MG (10 MG, 1 IN 1 D);
     Dates: end: 20080414
  2. AMILORIDE HCL [Suspect]
     Dosage: 10 MG 910 MG, 1 IN 1 D);
     Dates: end: 20080414
  3. DIGOXIN [Suspect]
     Indication: DRUG USE FOR UNKNOWN INDICATION
     Dosage: 62.5 MG (62.5 MG, 1 IN 1 D);
     Dates: end: 20080414
  4. RAMIPRIL [Suspect]
     Indication: CARDIAC FAILURE CONGESTIVE
     Dosage: 3.75 MG (3.75 MG, 1 IN 1 D);
     Dates: end: 20080414
  5. RAMIPRIL [Suspect]
     Indication: HYPERTENSION
     Dosage: 3.75 MG (3.75 MG, 1 IN 1 D);
     Dates: end: 20080414
  6. SPIRONOLACTONE [Suspect]
     Indication: OEDEMA
     Dosage: 25 MG (25 MG, 1 IN 1 D);
     Dates: start: 20080325, end: 20080414
  7. BUMETANIDE [Concomitant]
  8. GABAPENTIN [Concomitant]
  9. WARFARIN SODIUM [Concomitant]

REACTIONS (6)
  - ATRIOVENTRICULAR BLOCK COMPLETE [None]
  - BLOOD POTASSIUM INCREASED [None]
  - BLOOD PRESSURE DECREASED [None]
  - HAEMODIALYSIS [None]
  - RENAL FAILURE ACUTE [None]
  - SYNCOPE [None]
